FAERS Safety Report 24695647 (Version 1)
Quarter: 2024Q4

REPORT INFORMATION
  Report Type: Spontaneous
  Country: AR (occurrence: AR)
  Receive Date: 20241204
  Receipt Date: 20241204
  Transmission Date: 20250115
  Serious: Yes (Other)
  Sender: GLAXOSMITHKLINE
  Company Number: AR-GLAXOSMITHKLINE INC-AR2024AMR151281

PATIENT

DRUGS (1)
  1. ANORO ELLIPTA [Suspect]
     Active Substance: UMECLIDINIUM BROMIDE\VILANTEROL TRIFENATATE
     Indication: Product used for unknown indication
     Dosage: UNK

REACTIONS (1)
  - Lung operation [Unknown]
